FAERS Safety Report 10497243 (Version 1)
Quarter: 2014Q3

REPORT INFORMATION
  Report Type: Spontaneous
  Country: US (occurrence: None)
  Receive Date: 20140815
  Receipt Date: 20140815
  Transmission Date: 20150326
  Serious: Yes (Other)
  Sender: FDA-Public Use
  Company Number: ADR-2014-00776

PATIENT
  Age: 51 Year
  Sex: Female

DRUGS (3)
  1. COMPOUNDED BACLOFEN INTRATHECAL [Suspect]
     Active Substance: BACLOFEN
     Indication: MUSCLE SPASTICITY
  2. BUPIVACAINE [Suspect]
     Active Substance: BUPIVACAINE
  3. CLONIDINE. [Suspect]
     Active Substance: CLONIDINE
     Indication: MUSCLE SPASTICITY

REACTIONS (2)
  - Pain [None]
  - Therapeutic response decreased [None]
